FAERS Safety Report 10220536 (Version 1)
Quarter: 2014Q2

REPORT INFORMATION
  Report Type: Spontaneous
  Country: US (occurrence: US)
  Receive Date: 20140606
  Receipt Date: 20140606
  Transmission Date: 20141212
  Serious: No
  Sender: FDA-Public Use
  Company Number: US-SHIRE-US201402579

PATIENT
  Age: 29 Year
  Sex: Female
  Weight: 59.96 kg

DRUGS (1)
  1. VYVANSE [Suspect]
     Indication: ATTENTION DEFICIT/HYPERACTIVITY DISORDER
     Dosage: 40 MG, 1X/DAY:QD
     Route: 048
     Dates: start: 20140529

REACTIONS (4)
  - Generalised erythema [Recovered/Resolved]
  - Skin warm [Unknown]
  - Palpitations [Unknown]
  - Insomnia [Unknown]
